FAERS Safety Report 6876947-3 (Version None)
Quarter: 2010Q3

REPORT INFORMATION
  Report Type: 
  Country: None (occurrence: None)
  Receive Date: 20100727
  Receipt Date: 20100713
  Transmission Date: 20110219
  Serious: Yes (Other)
  Sender: FDA-Public Use
  Company Number: US-GENZYME-CERZ-1001377

PATIENT
  Sex: Female
  Weight: 45.45 kg

DRUGS (2)
  1. CEREZYME [Suspect]
     Indication: GAUCHER'S DISEASE
     Dosage: 2000 U, Q2W
     Route: 042
     Dates: start: 19910101
  2. ADVIL LIQUI-GELS [Suspect]
     Indication: PRODUCT USED FOR UNKNOWN INDICATION
     Dosage: UNK

REACTIONS (5)
  - BONE DISORDER [None]
  - CARPAL TUNNEL SYNDROME [None]
  - EPICONDYLITIS [None]
  - NERVE COMPRESSION [None]
  - VERTIGO [None]
